FAERS Safety Report 13385495 (Version 1)
Quarter: 2017Q1

REPORT INFORMATION
  Report Type: Spontaneous
  Country: US (occurrence: US)
  Receive Date: 20170330
  Receipt Date: 20170330
  Transmission Date: 20170429
  Serious: Yes (Disabling)
  Sender: FDA-Public Use
  Company Number: None

PATIENT
  Age: 18 Year
  Sex: Male
  Weight: 85.5 kg

DRUGS (2)
  1. VYVANSE [Concomitant]
     Active Substance: LISDEXAMFETAMINE DIMESYLATE
  2. OLD SPICE CLASSIC ORIGINAL SCENT [Suspect]
     Active Substance: ALUMINUM ZIRCONIUM TRICHLOROHYDREX GLY
     Indication: SKIN ODOUR ABNORMAL
     Dosage: QUANTITY:1 UNDERARM;OTHER ROUTE:ROLLED UNDER ARM?
     Dates: start: 20150319, end: 20170224

REACTIONS (2)
  - Chemical injury [None]
  - Rash [None]

NARRATIVE: CASE EVENT DATE: 20170224
